FAERS Safety Report 5211433-8 (Version None)
Quarter: 2006Q4

REPORT INFORMATION
  Report Type: 
  Country: None (occurrence: None)
  Receive Date: 20061115
  Receipt Date: 20060927
  Transmission Date: 20070319
  Serious: Yes (Other)
  Sender: FDA-Public Use
  Company Number: 200616013US

PATIENT
  Age: 45 Year
  Sex: Male

DRUGS (1)
  1. APIDRA [Suspect]
     Indication: DIABETES MELLITUS
     Dosage: 1.6 U QH SC
     Route: 058
     Dates: start: 20050901

REACTIONS (1)
  - HYPERGLYCAEMIA [None]
